FAERS Safety Report 20813319 (Version 1)
Quarter: 2022Q2

REPORT INFORMATION
  Report Type: Spontaneous
  Country: US (occurrence: None)
  Receive Date: 20220510
  Receipt Date: 20220510
  Transmission Date: 20220720
  Serious: Yes (Other)
  Sender: FDA-Public Use
  Company Number: None

PATIENT
  Sex: Male
  Weight: 87.09 kg

DRUGS (1)
  1. SOTALOL [Suspect]
     Active Substance: SOTALOL
     Indication: Ventricular tachycardia
     Dosage: FREQUENCY : TWICE A DAY;?
     Route: 048
     Dates: start: 2015

REACTIONS (2)
  - Product substitution issue [None]
  - Adverse drug reaction [None]

NARRATIVE: CASE EVENT DATE: 20150101
